FAERS Safety Report 20125406 (Version 1)
Quarter: 2021Q4

REPORT INFORMATION
  Report Type: Report from Study
  Country: US (occurrence: US)
  Receive Date: 20211129
  Receipt Date: 20211129
  Transmission Date: 20220303
  Serious: Yes (Other)
  Sender: FDA-Public Use
  Company Number: US-BAYER-2021A253536

PATIENT

DRUGS (1)
  1. AFRIN NO DRIP EXTRA MOISTURIZING [Suspect]
     Active Substance: OXYMETAZOLINE HYDROCHLORIDE
     Indication: Rhinitis allergic
     Route: 045

REACTIONS (5)
  - Drug dependence [Recovered/Resolved]
  - Incorrect product administration duration [Unknown]
  - Rebound nasal congestion [Unknown]
  - Nasal congestion [Unknown]
  - Panic attack [Unknown]
